FAERS Safety Report 21409413 (Version 2)
Quarter: 2022Q4

REPORT INFORMATION
  Report Type: Spontaneous
  Country: IT (occurrence: IT)
  Receive Date: 20221004
  Receipt Date: 20221007
  Transmission Date: 20230113
  Serious: Yes (Other)
  Sender: FDA-Public Use
  Company Number: IT-BIOMARINAP-IT-2022-145399

PATIENT

DRUGS (3)
  1. PALYNZIQ [Suspect]
     Active Substance: PEGVALIASE-PQPZ
     Indication: Phenylketonuria
     Dosage: 2.5 MILLIGRAM, QW
     Route: 058
     Dates: start: 20220825
  2. EBASTINE [Concomitant]
     Active Substance: EBASTINE
     Indication: Rhinitis prophylaxis
     Route: 048
  3. DESOGESTREL FARMITALIA [Concomitant]
     Indication: Migraine prophylaxis
     Dosage: UNK, QD
     Route: 048

REACTIONS (4)
  - Laryngeal oedema [Recovered/Resolved]
  - Odynophagia [Recovered/Resolved]
  - Abdominal pain [Recovered/Resolved]
  - Rash pruritic [Recovered/Resolved]

NARRATIVE: CASE EVENT DATE: 20220905
